FAERS Safety Report 26059052 (Version 1)
Quarter: 2025Q4

REPORT INFORMATION
  Report Type: Spontaneous
  Country: US (occurrence: US)
  Receive Date: 20251118
  Receipt Date: 20251118
  Transmission Date: 20260117
  Serious: No
  Sender: COLLEGIUM PHARMACEUTICAL
  Company Number: US-COLLEGIUM PHARMACEUTICAL, INC.-20250301871

PATIENT

DRUGS (1)
  1. BELBUCA [Suspect]
     Active Substance: BUPRENORPHINE HYDROCHLORIDE
     Indication: Product used for unknown indication
     Dosage: 900 MICROGRAM, UNKNOWN
     Route: 002

REACTIONS (6)
  - Head injury [Unknown]
  - Fall [Unknown]
  - Pain in extremity [Unknown]
  - Asthenia [Unknown]
  - Product physical issue [Unknown]
  - Product packaging issue [Unknown]
